FAERS Safety Report 5325691-2 (Version None)
Quarter: 2007Q2

REPORT INFORMATION
  Report Type: 
  Country: None (occurrence: None)
  Receive Date: 20070515
  Receipt Date: 20070503
  Transmission Date: 20071010
  Serious: Yes (Other)
  Sender: FDA-Public Use
  Company Number: US-PFIZER INC-2007036954

PATIENT
  Sex: Female
  Weight: 99.545 kg

DRUGS (14)
  1. CHANTIX [Suspect]
     Indication: SMOKING CESSATION THERAPY
     Dates: start: 20070425, end: 20070429
  2. TENORMIN [Concomitant]
  3. FIORICET [Concomitant]
  4. NORFLEX [Concomitant]
     Dates: start: 20070425, end: 20070429
  5. NORVASC [Concomitant]
  6. SLOW-K [Concomitant]
  7. MAXZIDE [Concomitant]
  8. PLAVIX [Concomitant]
  9. CRESTOR [Concomitant]
  10. LISINOPRIL [Concomitant]
  11. IMDUR [Concomitant]
  12. REMERON [Concomitant]
  13. NEXIUM [Concomitant]
  14. ACETYLSALICYLIC ACID SRT [Concomitant]

REACTIONS (6)
  - COUGH [None]
  - ENDOSCOPY [None]
  - EXCORIATION [None]
  - NAUSEA [None]
  - RETCHING [None]
  - SENSATION OF FOREIGN BODY [None]
